FAERS Safety Report 20145817 (Version 1)
Quarter: 2021Q4

REPORT INFORMATION
  Report Type: Spontaneous
  Country: FR (occurrence: FR)
  Receive Date: 20211203
  Receipt Date: 20211203
  Transmission Date: 20220304
  Serious: Yes (Hospitalization)
  Sender: FDA-Public Use
  Company Number: FR-GALTPHARMA-2021-FR-000236

PATIENT
  Age: 86 Year
  Sex: Female
  Weight: 54.7 kg

DRUGS (10)
  1. ORAVIG [Suspect]
     Active Substance: MICONAZOLE
     Indication: Oral fungal infection
     Dosage: 1 DAILY
     Route: 048
     Dates: start: 20211013, end: 20211014
  2. RAMIPRIL [Suspect]
     Active Substance: RAMIPRIL
     Indication: Product used for unknown indication
     Dosage: 2.5MG/DAY
     Route: 048
     Dates: start: 20211019, end: 20211026
  3. IRBESARTAN [Interacting]
     Active Substance: IRBESARTAN
     Indication: Product used for unknown indication
     Dosage: 150MG/DAY
     Route: 048
     Dates: start: 20210929, end: 20211019
  4. OXYCODONE [Suspect]
     Active Substance: OXYCODONE
     Indication: Product used for unknown indication
     Dosage: 5MG/DAY
     Route: 048
     Dates: start: 20211015, end: 20211026
  5. AMIODARONE [Suspect]
     Active Substance: AMIODARONE
     Indication: Product used for unknown indication
     Dosage: 800MG ON 19-OCT-2021 AND 400MG PER DAY FROM 20-OCT-2021 TO 25-OCT-2021
     Route: 048
     Dates: start: 20211019, end: 20211025
  6. APIXABAN [Interacting]
     Active Substance: APIXABAN
     Indication: Product used for unknown indication
     Dosage: 2.5MG EVEY 12 HOURS
     Route: 048
     Dates: start: 20211004, end: 20211026
  7. AMPHOTERICIN B [Suspect]
     Active Substance: AMPHOTERICIN B
     Indication: Oral fungal infection
     Dosage: 15ML EVERY 8 HOURS
     Route: 048
     Dates: start: 20211014, end: 20211023
  8. AMOXICILLIN [Suspect]
     Active Substance: AMOXICILLIN
     Indication: Product used for unknown indication
     Dosage: 1 G EVERY 8 HOURS
     Route: 048
     Dates: start: 20211020, end: 20211024
  9. COMIRNATY [Suspect]
     Active Substance: TOZINAMERAN
     Indication: Product used for unknown indication
     Dosage: 1 DOSAGE FORM ON 04-OCT-2021
     Route: 065
     Dates: start: 20211004, end: 20211004
  10. FUROSEMIDE [Suspect]
     Active Substance: FUROSEMIDE
     Indication: Product used for unknown indication
     Dosage: 40MG/DAY FROM 06-OCT-2021 TO 12-OCT-2021 ; 80MG/DAY FROM 12-OCT-2021 TO 18-OCT-2021; 40MG/DAY FROM
     Route: 048
     Dates: start: 20211006, end: 20211026

REACTIONS (2)
  - Hepatic cytolysis [Not Recovered/Not Resolved]
  - Hepatic enzyme increased [Not Recovered/Not Resolved]

NARRATIVE: CASE EVENT DATE: 20211021
